FAERS Safety Report 9233260 (Version 2)
Quarter: 2013Q4

REPORT INFORMATION
  Report Type: Spontaneous
  Country: US (occurrence: US)
  Receive Date: 20130416
  Receipt Date: 20131107
  Transmission Date: 20140711
  Serious: Yes (Hospitalization)
  Sender: FDA-Public Use
  Company Number: US-BAYER-2013-047615

PATIENT
  Age: 54 Year
  Sex: Female

DRUGS (9)
  1. LEVOXYL [Concomitant]
  2. HYDROCHLOROTHIAZIDE [Concomitant]
  3. METFORMIN [Concomitant]
  4. PHENTERMINE [Concomitant]
  5. VICODIN [Concomitant]
  6. YAZ [Suspect]
     Indication: OESTROGEN REPLACEMENT THERAPY
     Dosage: UNK
     Route: 048
     Dates: start: 2004, end: 20090717
  7. YASMIN [Suspect]
     Dosage: UNK
     Route: 048
     Dates: start: 2004, end: 20090717
  8. OCELLA [Suspect]
     Dosage: UNK
     Route: 048
     Dates: start: 2004, end: 20090717
  9. LISINOPRIL [Concomitant]

REACTIONS (7)
  - Deep vein thrombosis [Recovered/Resolved]
  - Injury [Recovered/Resolved]
  - Pain [Recovered/Resolved]
  - Emotional distress [None]
  - General physical health deterioration [Recovered/Resolved]
  - Anxiety [None]
  - Pain [None]
